FAERS Safety Report 20328873 (Version 1)
Quarter: 2022Q1

REPORT INFORMATION
  Report Type: Spontaneous
  Country: CN (occurrence: None)
  Receive Date: 20220112
  Receipt Date: 20220112
  Transmission Date: 20220423
  Serious: Yes (Other)
  Sender: FDA-Public Use
  Company Number: CN-Merck Healthcare KGaA-9267989

PATIENT
  Age: 73 Year
  Sex: Male

DRUGS (5)
  1. EUTHYROX [Suspect]
     Active Substance: LEVOTHYROXINE SODIUM
     Indication: Blood thyroid stimulating hormone increased
     Route: 048
     Dates: start: 202006
  2. EUTHYROX [Suspect]
     Active Substance: LEVOTHYROXINE SODIUM
     Dosage: 0.25 TABLET/DAY?PRODUCTION DATE WAS OCTOBER 2020
     Route: 048
     Dates: start: 20210914, end: 202109
  3. EUTHYROX [Suspect]
     Active Substance: LEVOTHYROXINE SODIUM
     Dosage: 0.5 TABLET/DAY (FROM 23 SEP 2021 TO 23 SEP 2021).
     Route: 048
     Dates: start: 202109, end: 202109
  4. EUTHYROX [Suspect]
     Active Substance: LEVOTHYROXINE SODIUM
     Dosage: START DATE: 24 SEP 2021.
     Route: 048
     Dates: start: 202109
  5. AMLODIPINE BESYLATE [Concomitant]
     Active Substance: AMLODIPINE BESYLATE
     Indication: Hypertension

REACTIONS (13)
  - Loss of consciousness [Unknown]
  - Marasmus [Unknown]
  - Fatigue [Unknown]
  - Balance disorder [Recovered/Resolved]
  - Dizziness [Not Recovered/Not Resolved]
  - Heart rate decreased [Unknown]
  - Trance [Recovered/Resolved]
  - Blood pressure decreased [Recovering/Resolving]
  - Blood thyroid stimulating hormone increased [Unknown]
  - Insomnia [Unknown]
  - Intentional product use issue [Unknown]
  - Product storage error [Unknown]
  - Inappropriate schedule of product administration [Unknown]

NARRATIVE: CASE EVENT DATE: 20200601
